FAERS Safety Report 13288562 (Version 3)
Quarter: 2017Q4

REPORT INFORMATION
  Report Type: Spontaneous
  Country: RS (occurrence: RS)
  Receive Date: 20170302
  Receipt Date: 20171205
  Transmission Date: 20180320
  Serious: Yes (Death, Hospitalization)
  Sender: FDA-Public Use
  Company Number: PHHY2017RS026471

PATIENT
  Age: 26 Year
  Sex: Female

DRUGS (7)
  1. CLOZAPINE. [Suspect]
     Active Substance: CLOZAPINE
     Indication: BRIEF PSYCHOTIC DISORDER, WITH POSTPARTUM ONSET
     Dosage: UNK
     Route: 065
  2. HALOPERIDOL. [Suspect]
     Active Substance: HALOPERIDOL
     Indication: BRIEF PSYCHOTIC DISORDER, WITH POSTPARTUM ONSET
     Dosage: UNK
     Route: 065
  3. RISPERIDONE. [Suspect]
     Active Substance: RISPERIDONE
     Indication: BRIEF PSYCHOTIC DISORDER, WITH POSTPARTUM ONSET
     Dosage: UNK
     Route: 065
  4. LAMOTRIGINE. [Suspect]
     Active Substance: LAMOTRIGINE
     Indication: BRIEF PSYCHOTIC DISORDER, WITH POSTPARTUM ONSET
     Dosage: UNK
     Route: 065
  5. LORAZEPAM. [Suspect]
     Active Substance: LORAZEPAM
     Indication: BRIEF PSYCHOTIC DISORDER, WITH POSTPARTUM ONSET
     Dosage: UNK
     Route: 065
  6. TEMAZEPAM. [Suspect]
     Active Substance: TEMAZEPAM
     Indication: BRIEF PSYCHOTIC DISORDER, WITH POSTPARTUM ONSET
     Dosage: UNK
     Route: 065
  7. DIAZEPAM. [Suspect]
     Active Substance: DIAZEPAM
     Indication: BRIEF PSYCHOTIC DISORDER, WITH POSTPARTUM ONSET
     Dosage: UNK
     Route: 065

REACTIONS (2)
  - Venous thrombosis limb [Fatal]
  - Pulmonary embolism [Fatal]
